FAERS Safety Report 5069713-5 (Version None)
Quarter: 2006Q3

REPORT INFORMATION
  Report Type: 
  Country: None (occurrence: None)
  Receive Date: 20060803
  Receipt Date: 20060727
  Transmission Date: 20061208
  Serious: Yes (Hospitalization)
  Sender: FDA-Public Use
  Company Number: GB-BRISTOL-MYERS SQUIBB COMPANY-13457874

PATIENT
  Age: 42 Year
  Sex: Female
  Weight: 76 kg

DRUGS (4)
  1. CYCLOPHOSPHAMIDE [Suspect]
     Indication: BREAST CANCER
     Dates: start: 20060519, end: 20060630
  2. EPIRUBICIN [Suspect]
     Indication: BREAST CANCER
     Dates: start: 20060519, end: 20060630
  3. FLUOROURACIL [Suspect]
     Indication: BREAST CANCER
     Dates: start: 20060519, end: 20060630
  4. AMITRIPTYLINE HCL [Concomitant]
     Dates: start: 20010101

REACTIONS (2)
  - INFECTION [None]
  - PHLEBOSCLEROSIS [None]
